FAERS Safety Report 22058826 (Version 1)
Quarter: 2023Q1

REPORT INFORMATION
  Report Type: Spontaneous
  Country: US (occurrence: None)
  Receive Date: 20230302
  Receipt Date: 20230302
  Transmission Date: 20230418
  Serious: Yes (Hospitalization)
  Sender: FDA-Public Use
  Company Number: None

PATIENT
  Age: 34 Year
  Sex: Female

DRUGS (1)
  1. ENBREL [Suspect]
     Active Substance: ETANERCEPT
     Indication: Rheumatoid arthritis
     Dosage: 50MG OTHER  SUBCUTANEOUS
     Route: 058
     Dates: start: 202210

REACTIONS (2)
  - Pneumonia [None]
  - White blood cell count increased [None]

NARRATIVE: CASE EVENT DATE: 20230220
